FAERS Safety Report 21641754 (Version 1)
Quarter: 2022Q4

REPORT INFORMATION
  Report Type: Report from Study
  Country: NL (occurrence: NL)
  Receive Date: 20221125
  Receipt Date: 20221125
  Transmission Date: 20230112
  Serious: Yes (Other)
  Sender: FDA-Public Use
  Company Number: NL-ABBVIE-4214122

PATIENT
  Age: 87 Year
  Sex: Male

DRUGS (3)
  1. CARBIDOPA\LEVODOPA [Suspect]
     Active Substance: CARBIDOPA\LEVODOPA
     Indication: Parkinson^s disease
     Dosage: MD 15.5 ML, CD 4.0 ML/H, ED 2.0 ML, REMAINS AT 16 HOURS
     Route: 050
     Dates: start: 20181113, end: 20181118
  2. CARBIDOPA\LEVODOPA [Suspect]
     Active Substance: CARBIDOPA\LEVODOPA
  3. POLYETHYLENE GLYCOLS [Concomitant]
     Active Substance: POLYETHYLENE GLYCOLS
     Indication: Product used for unknown indication

REACTIONS (3)
  - Terminal state [Not Recovered/Not Resolved]
  - Device issue [Not Recovered/Not Resolved]
  - General physical health deterioration [Not Recovered/Not Resolved]
